FAERS Safety Report 10567759 (Version 1)
Quarter: 2014Q4

REPORT INFORMATION
  Report Type: Spontaneous
  Country: US (occurrence: None)
  Receive Date: 20141104
  Receipt Date: 20141104
  Transmission Date: 20150529
  Serious: Yes (Other)
  Sender: FDA-Public Use
  Company Number: AMAG201400231

PATIENT
  Age: 39 Year
  Sex: Female
  Weight: 80.3 kg

DRUGS (3)
  1. FERAHEME [Suspect]
     Active Substance: FERUMOXYTOL NON-STOICHIOMETRIC MAGNETITE
     Indication: IRON DEFICIENCY ANAEMIA
     Dosage: 5CC SINGLE INFUSION
     Dates: start: 20140613, end: 20140613
  2. ORTHO-TRI-CYCLEN (ETHINYLESTRADIOL, NORGESTIMATE) [Concomitant]
  3. SYNTHROID [Concomitant]
     Active Substance: LEVOTHYROXINE SODIUM

REACTIONS (8)
  - Abdominal pain upper [None]
  - Anaphylactic reaction [None]
  - Hypotension [None]
  - Feeling hot [None]
  - Nausea [None]
  - Agitation [None]
  - Flushing [None]
  - Dyspnoea [None]

NARRATIVE: CASE EVENT DATE: 20140613
